FAERS Safety Report 7630462-8 (Version None)
Quarter: 2011Q3

REPORT INFORMATION
  Report Type: 
  Country: None (occurrence: None)
  Receive Date: 20110722
  Receipt Date: 20110711
  Transmission Date: 20111222
  Serious: Yes (Hospitalization, Disabling)
  Sender: FDA-Public Use
  Company Number: CH-US-EMD SERONO, INC.-7070066

PATIENT
  Sex: Female

DRUGS (3)
  1. REBIF [Suspect]
     Indication: MULTIPLE SCLEROSIS
     Route: 058
     Dates: start: 20080101
  2. GLYTACID MEPHA [Concomitant]
     Indication: DIABETES MELLITUS
     Route: 048
  3. BILOL [Concomitant]
     Indication: HYPERTENSION
     Route: 048

REACTIONS (1)
  - CEREBROVASCULAR ACCIDENT [None]
